FAERS Safety Report 18928498 (Version 1)
Quarter: 2021Q1

REPORT INFORMATION
  Report Type: Spontaneous
  Country: GB (occurrence: GB)
  Receive Date: 20210223
  Receipt Date: 20210223
  Transmission Date: 20210420
  Serious: Yes (Other)
  Sender: FDA-Public Use
  Company Number: GB-PFIZER INC-2021147072

PATIENT
  Sex: Female

DRUGS (1)
  1. CABERGOLINE. [Suspect]
     Active Substance: CABERGOLINE
     Indication: PROLACTIN-PRODUCING PITUITARY TUMOUR
     Dosage: UNK
     Route: 064

REACTIONS (4)
  - Tourette^s disorder [Unknown]
  - Weight decrease neonatal [Unknown]
  - Maternal exposure timing unspecified [Unknown]
  - Autism spectrum disorder [Unknown]
